FAERS Safety Report 18600219 (Version 1)
Quarter: 2020Q4

REPORT INFORMATION
  Report Type: Spontaneous
  Country: US (occurrence: US)
  Receive Date: 20201210
  Receipt Date: 20201210
  Transmission Date: 20210114
  Serious: Yes (Hospitalization)
  Sender: FDA-Public Use
  Company Number: None

PATIENT
  Age: 74 Year
  Sex: Male
  Weight: 87.8 kg

DRUGS (1)
  1. BAMLANIVIMAB. [Suspect]
     Active Substance: BAMLANIVIMAB
     Indication: COVID-19
     Dosage: ?          OTHER FREQUENCY:ONCE;?
     Route: 041
     Dates: start: 20201127, end: 20201127

REACTIONS (17)
  - Insomnia [None]
  - Fatigue [None]
  - End stage renal disease [None]
  - Fibrin D dimer increased [None]
  - Iron deficiency anaemia [None]
  - Cough [None]
  - Chronic kidney disease [None]
  - Disease progression [None]
  - Haemodialysis [None]
  - Nausea [None]
  - Rhonchi [None]
  - Condition aggravated [None]
  - Headache [None]
  - Pyrexia [None]
  - Dyspnoea [None]
  - Pain [None]
  - Metabolic acidosis [None]

NARRATIVE: CASE EVENT DATE: 20201201
